FAERS Safety Report 10064731 (Version 1)
Quarter: 2014Q1

REPORT INFORMATION
  Report Type: Spontaneous
  Country: US (occurrence: None)
  Receive Date: 20140328
  Receipt Date: 20140328
  Transmission Date: 20141002
  Serious: No
  Sender: FDA-Public Use
  Company Number: 1000052827

PATIENT
  Age: 43 Year
  Sex: Female

DRUGS (9)
  1. LINZESS [Suspect]
     Indication: CONSTIPATION
     Dosage: 145 MCG, 1 IN 1 D
     Route: 048
     Dates: start: 20140111, end: 20140111
  2. FISH OIL [Concomitant]
  3. VITAMIN D [Concomitant]
  4. BIOTIN [Concomitant]
  5. VITAMIN B 12 [Concomitant]
  6. PRILOSEC [Concomitant]
  7. BUSPIRONE [Concomitant]
  8. MAGNESIUM [Concomitant]
  9. IRON [Concomitant]

REACTIONS (3)
  - Diarrhoea [None]
  - Dizziness [None]
  - Intentional drug misuse [None]
